FAERS Safety Report 15305342 (Version 1)
Quarter: 2018Q3

REPORT INFORMATION
  Report Type: Report from Study
  Country: JP (occurrence: JP)
  Receive Date: 20180822
  Receipt Date: 20180822
  Transmission Date: 20181010
  Serious: Yes (Other)
  Sender: FDA-Public Use
  Company Number: JP-ROCHE-GNE282016

PATIENT
  Age: 81 Year
  Sex: Male

DRUGS (8)
  1. PEGAPTANIB [Concomitant]
     Active Substance: PEGAPTANIB
     Dosage: 1 DF, UNK
     Route: 031
     Dates: start: 20090302
  2. HYALURONATE SODIUM [Concomitant]
     Active Substance: HYALURONATE SODIUM
     Indication: PRODUCT USED FOR UNKNOWN INDICATION
  3. PEGAPTANIB [Concomitant]
     Active Substance: PEGAPTANIB
     Indication: AGE-RELATED MACULAR DEGENERATION
     Dosage: 1 DF, UNK
     Route: 031
     Dates: start: 20090119
  4. HYALEIN [Concomitant]
     Active Substance: HYALURONATE SODIUM
     Route: 065
  5. LEVOFLOXACIN. [Concomitant]
     Active Substance: LEVOFLOXACIN
     Indication: PRODUCT USED FOR UNKNOWN INDICATION
     Dosage: UNK
     Route: 065
     Dates: start: 20090410, end: 20090420
  6. RANIBIZUMAB. [Suspect]
     Active Substance: RANIBIZUMAB
     Indication: AGE-RELATED MACULAR DEGENERATION
     Dosage: UNK
     Route: 050
     Dates: start: 20090413, end: 20090413
  7. TARIVID [Concomitant]
     Active Substance: OFLOXACIN
     Indication: PRODUCT USED FOR UNKNOWN INDICATION
  8. FLUMETHOLON [Concomitant]
     Active Substance: FLUOROMETHOLONE
     Route: 065

REACTIONS (7)
  - Eye pain [Unknown]
  - Corneal disorder [Recovering/Resolving]
  - Hypersensitivity [Recovering/Resolving]
  - Corneal exfoliation [Recovering/Resolving]
  - Corneal oedema [Recovering/Resolving]
  - Corneal abrasion [Recovering/Resolving]
  - Visual acuity reduced [Recovered/Resolved]

NARRATIVE: CASE EVENT DATE: 20090413
